FAERS Safety Report 5371305-5 (Version None)
Quarter: 2007Q2

REPORT INFORMATION
  Report Type: 
  Country: None (occurrence: None)
  Receive Date: 20070615
  Receipt Date: 20060724
  Transmission Date: 20071010
  Serious: Yes (Other)
  Sender: FDA-Public Use
  Company Number: 200615506US

PATIENT
  Age: 87 Year
  Sex: Male
  Weight: 71.81 kg

DRUGS (13)
  1. LANTUS [Suspect]
     Indication: DIABETES MELLITUS NON-INSULIN-DEPENDENT
     Dosage: 15 IU; QD;
     Dates: start: 20060621
  2. OPTICLIK [Suspect]
     Indication: DIABETES MELLITUS NON-INSULIN-DEPENDENT
  3. DONEPEZIL HYDROCHLORIDE (ARICEPT) UNKNOWN [Concomitant]
  4. AMLODIPINE (NORVASC (00972401/) [Concomitant]
  5. LEVOTHYROXINE SODIUM [Concomitant]
  6. PROSCAR [Concomitant]
  7. RANITIDINE [Concomitant]
  8. ATORVASTATIN CALCIUM (LIPITOR) [Concomitant]
  9. COUMADIN [Concomitant]
  10. TOPROL-XL [Concomitant]
  11. DIGOXIN [Concomitant]
  12. SALBUTAMOL [Concomitant]
  13. SPIRIVA [Concomitant]

REACTIONS (1)
  - HYPERGLYCAEMIA [None]
